FAERS Safety Report 8262154-9 (Version None)
Quarter: 2012Q2

REPORT INFORMATION
  Report Type: 
  Country: None (occurrence: None)
  Receive Date: 20120405
  Receipt Date: 20120329
  Transmission Date: 20120825
  Serious: Yes (Hospitalization)
  Sender: FDA-Public Use
  Company Number: GB-PFIZER INC-2012057739

PATIENT
  Age: 59 Year
  Sex: Male

DRUGS (5)
  1. VORICONAZOLE [Suspect]
     Dosage: 400 MG, 1X/DAY
     Route: 048
     Dates: start: 20120210, end: 20120214
  2. ENOXAPARIN [Concomitant]
  3. CLARITHROMYCIN [Concomitant]
  4. VORICONAZOLE [Suspect]
     Indication: FUNGAL INFECTION
     Dosage: 400 MG, 2X/DAY
     Route: 048
     Dates: start: 20120208, end: 20120209
  5. TRETINOIN [Concomitant]

REACTIONS (2)
  - RENAL FAILURE ACUTE [None]
  - GLOMERULAR FILTRATION RATE DECREASED [None]
